FAERS Safety Report 6830273-7 (Version None)
Quarter: 2010Q3

REPORT INFORMATION
  Report Type: 
  Country: None (occurrence: None)
  Receive Date: 20100712
  Receipt Date: 20100701
  Transmission Date: 20110219
  Serious: Yes (Hospitalization)
  Sender: FDA-Public Use
  Company Number: US-BIOGENIDEC-2010BI022126

PATIENT
  Age: 57 Year
  Sex: Female
  Weight: 63 kg

DRUGS (4)
  1. TYSABRI [Suspect]
     Indication: MULTIPLE SCLEROSIS
     Route: 042
     Dates: start: 20060911, end: 20090101
  2. TYSABRI [Suspect]
     Route: 042
     Dates: start: 20090101
  3. BACLOFEN [Concomitant]
     Indication: MULTIPLE SCLEROSIS
  4. VESICARE [Concomitant]
     Indication: MULTIPLE SCLEROSIS

REACTIONS (6)
  - CONCUSSION [None]
  - DYSPEPSIA [None]
  - FALL [None]
  - INTERVERTEBRAL DISC DISORDER [None]
  - MULTIPLE SCLEROSIS RELAPSE [None]
  - SKULL FRACTURE [None]
